FAERS Safety Report 5028775-1 (Version None)
Quarter: 2006Q2

REPORT INFORMATION
  Report Type: 
  Country: None (occurrence: None)
  Receive Date: 20060619
  Receipt Date: 20060606
  Transmission Date: 20061013
  Serious: Yes (Life-Threatening)
  Sender: FDA-Public Use
  Company Number: ES-JNJFOC-20060202207

PATIENT
  Age: 45 Year
  Sex: Female
  Weight: 51 kg

DRUGS (2)
  1. REMICADE [Suspect]
     Indication: CROHN'S DISEASE
     Route: 042
  2. AZATHIOPRINE [Suspect]
     Indication: CROHN'S DISEASE
     Route: 065
     Dates: start: 20041101, end: 20051013

REACTIONS (6)
  - APHTHOUS STOMATITIS [None]
  - ARTHRALGIA [None]
  - CONJUNCTIVITIS [None]
  - HERPES ZOSTER [None]
  - IRON DEFICIENCY ANAEMIA [None]
  - POST HERPETIC NEURALGIA [None]
